FAERS Safety Report 9427119 (Version 1)
Quarter: 2013Q3

REPORT INFORMATION
  Report Type: Spontaneous
  Country: US (occurrence: US)
  Receive Date: 20130730
  Receipt Date: 20130730
  Transmission Date: 20140515
  Serious: No
  Sender: FDA-Public Use
  Company Number: US-ABBOTT-12P-163-0972811-00

PATIENT
  Age: 78 Year
  Sex: Male
  Weight: 73.09 kg

DRUGS (7)
  1. NIASPAN (COATED) 500MG [Suspect]
     Indication: BLOOD CHOLESTEROL INCREASED
     Dates: start: 2011
  2. VYTORIN [Concomitant]
     Indication: BLOOD CHOLESTEROL INCREASED
  3. ATENOLOL [Concomitant]
     Indication: HYPERTENSION
  4. ALLEGRA [Concomitant]
     Indication: HYPERSENSITIVITY
  5. FISH OIL [Concomitant]
     Indication: SUPPLEMENTATION THERAPY
  6. ASPIRIN [Concomitant]
     Indication: CARDIOVASCULAR EVENT PROPHYLAXIS
  7. CALCIUM [Concomitant]
     Indication: MINERAL SUPPLEMENTATION

REACTIONS (2)
  - Rash [Not Recovered/Not Resolved]
  - Flushing [Recovered/Resolved]
